FAERS Safety Report 5621049-7 (Version None)
Quarter: 2008Q1

REPORT INFORMATION
  Report Type: 
  Country: None (occurrence: None)
  Receive Date: 20080208
  Receipt Date: 20080129
  Transmission Date: 20080703
  Serious: Yes (Hospitalization)
  Sender: FDA-Public Use
  Company Number: CA-PFIZER INC-2008010811

PATIENT
  Sex: Female

DRUGS (2)
  1. CHANTIX [Suspect]
     Route: 048
  2. ANTIDEPRESSANTS [Concomitant]

REACTIONS (1)
  - MOOD ALTERED [None]
